FAERS Safety Report 5387868-X (Version None)
Quarter: 2007Q3

REPORT INFORMATION
  Report Type: 
  Country: None (occurrence: None)
  Receive Date: 20070712
  Receipt Date: 20070627
  Transmission Date: 20080115
  Serious: Yes (Hospitalization)
  Sender: FDA-Public Use
  Company Number: PHBS2007JP10772

PATIENT
  Age: 57 Year
  Sex: Male

DRUGS (1)
  1. VISUDYNE [Suspect]
     Indication: MACULAR DEGENERATION
     Dosage: 9 MG DAILY IV
     Route: 042
     Dates: start: 20070621, end: 20070621

REACTIONS (2)
  - STRESS [None]
  - VOMITING [None]
